FAERS Safety Report 9054981 (Version 1)
Quarter: 2013Q1

REPORT INFORMATION
  Report Type: Spontaneous
  Country: US (occurrence: US)
  Receive Date: 20130208
  Receipt Date: 20130208
  Transmission Date: 20140127
  Serious: Yes (Death)
  Sender: FDA-Public Use
  Company Number: US-ELI_LILLY_AND_COMPANY-US201109000438

PATIENT
  Age: 88 None
  Sex: Female

DRUGS (5)
  1. FORTEO [Suspect]
     Indication: OSTEOPOROSIS
     Dosage: 20 UG, QD
     Route: 065
  2. FORTEO [Suspect]
     Dosage: 20 UG, QD
     Route: 065
  3. ANABOLIC STEROIDS [Concomitant]
  4. COUMADIN [Concomitant]
  5. INSULIN [Concomitant]

REACTIONS (3)
  - Myocardial infarction [Fatal]
  - Pain in extremity [Unknown]
  - Injection site bruising [Unknown]
